FAERS Safety Report 6945467-X (Version None)
Quarter: 2010Q3

REPORT INFORMATION
  Report Type: 
  Country: None (occurrence: None)
  Receive Date: 20100827
  Receipt Date: 20100819
  Transmission Date: 20110219
  Serious: No
  Sender: FDA-Public Use
  Company Number: MX-ROCHE-721138

PATIENT
  Sex: Female
  Weight: 85 kg

DRUGS (1)
  1. TRASTUZUMAB [Suspect]
     Route: 042
     Dates: start: 20090901

REACTIONS (5)
  - ARTHRALGIA [None]
  - BONE PAIN [None]
  - DIZZINESS [None]
  - TOOTH DISORDER [None]
  - TOOTHACHE [None]
